FAERS Safety Report 22933462 (Version 2)
Quarter: 2023Q4

REPORT INFORMATION
  Report Type: Other
  Country: CN (occurrence: None)
  Receive Date: 20230912
  Receipt Date: 20231026
  Transmission Date: 20240110
  Serious: Yes (Other)
  Sender: FDA-Public Use
  Company Number: CN-ROCHE-3418280

PATIENT
  Age: 75 Year
  Sex: Male

DRUGS (2)
  1. TRASTUZUMAB [Suspect]
     Active Substance: TRASTUZUMAB
     Indication: HER2 positive gastric cancer
     Dosage: FOR MAXIMUN OF 3 CYCLES
     Route: 065
  2. OXALIPLATIN [Concomitant]
     Active Substance: OXALIPLATIN
     Dosage: ON DAY 1

REACTIONS (3)
  - Disease progression [Unknown]
  - Metastases to stomach [Unknown]
  - Drug intolerance [Unknown]
